FAERS Safety Report 12184854 (Version 1)
Quarter: 2016Q1

REPORT INFORMATION
  Report Type: Spontaneous
  Country: BR (occurrence: BR)
  Receive Date: 20160316
  Receipt Date: 20160316
  Transmission Date: 20160526
  Serious: Yes (Other)
  Sender: FDA-Public Use
  Company Number: BR-WATSON-2016-05459

PATIENT
  Age: 65 Year
  Sex: Female

DRUGS (1)
  1. OMEPRAZOLE (UNKNOWN) [Suspect]
     Active Substance: OMEPRAZOLE
     Indication: PRODUCT USED FOR UNKNOWN INDICATION
     Dosage: UNK
     Route: 065

REACTIONS (7)
  - Paraesthesia [Unknown]
  - Hypocalcaemia [Unknown]
  - Arrhythmia [Unknown]
  - Electrocardiogram ST segment depression [Unknown]
  - Hypoparathyroidism [Unknown]
  - Hypomagnesaemia [Unknown]
  - Electrocardiogram QT prolonged [Unknown]
